FAERS Safety Report 15213652 (Version 1)
Quarter: 2018Q3

REPORT INFORMATION
  Report Type: Report from Study
  Country: US (occurrence: US)
  Receive Date: 20180730
  Receipt Date: 20180730
  Transmission Date: 20181010
  Serious: Yes (Other)
  Sender: FDA-Public Use
  Company Number: US-ROCHE-2143156

PATIENT
  Age: 63 Year
  Sex: Female
  Weight: 97.5 kg

DRUGS (6)
  1. 5?FLUOROURACIL [Suspect]
     Active Substance: FLUOROURACIL
     Indication: ADENOCARCINOMA OF COLON
     Route: 040
     Dates: start: 20180423
  2. OXALIPLATIN. [Suspect]
     Active Substance: OXALIPLATIN
     Indication: ADENOCARCINOMA OF COLON
     Dosage: LAST DOSES OF OXALIPLATIN 180 MG ON 18/JUN/2018 (CYCLE 5 DAY 1)
     Route: 042
     Dates: start: 20180423
  3. LEUCOVORIN CALCIUM. [Suspect]
     Active Substance: LEUCOVORIN CALCIUM
     Indication: ADENOCARCINOMA OF COLON
     Dosage: LAST DOSES OF LEUCOVORIN CALCIUM 868 MG ON 18/JUN/2018 (CYCLE 5 DAY 1)
     Route: 042
     Dates: start: 20180423
  4. 5?FLUOROURACIL [Suspect]
     Active Substance: FLUOROURACIL
     Dosage: LAST DOSE OF 5?FLUOROURACIL 6080 MG ON 20/JUN/2018 (CYCLE 5, DAY 3),
     Route: 042
     Dates: start: 20180423
  5. VISTOGARD [Suspect]
     Active Substance: URIDINE TRIACETATE
     Indication: PRODUCT USED FOR UNKNOWN INDICATION
     Route: 065
  6. ATEZOLIZUMAB. [Suspect]
     Active Substance: ATEZOLIZUMAB
     Indication: ADENOCARCINOMA OF COLON
     Dosage: LAST DOSE ON 18/JUN/2018 (CYCLE 5 DAY1)
     Route: 042
     Dates: start: 20180423

REACTIONS (3)
  - Diarrhoea [Recovered/Resolved with Sequelae]
  - Neutrophil count decreased [Recovered/Resolved with Sequelae]
  - Hypokalaemia [Recovered/Resolved with Sequelae]

NARRATIVE: CASE EVENT DATE: 20180427
